FAERS Safety Report 7799640-1 (Version None)
Quarter: 2011Q4

REPORT INFORMATION
  Report Type: 
  Country: None (occurrence: None)
  Receive Date: 20111006
  Receipt Date: 20110926
  Transmission Date: 20120403
  Serious: Yes (Death, Other)
  Sender: FDA-Public Use
  Company Number: JP-BRISTOL-MYERS SQUIBB COMPANY-16095721

PATIENT
  Age: 51 Year
  Sex: Female

DRUGS (4)
  1. PHENYTOIN [Suspect]
     Indication: OVARIAN CANCER METASTATIC
  2. PACLITAXEL [Suspect]
     Indication: OVARIAN CANCER METASTATIC
     Dosage: 3 COURSES AT 3 WEEK INTERVAL. 160 MG/M2) WEEKLY FOR A TOTAL OF 20 COURSES,
  3. CISPLATIN [Suspect]
     Indication: OVARIAN CANCER METASTATIC
  4. CARBOPLATIN [Suspect]
     Indication: OVARIAN CANCER METASTATIC
     Dosage: AUC - 5

REACTIONS (4)
  - HYPERSENSITIVITY [None]
  - METASTASES TO MENINGES [None]
  - INAPPROPRIATE ANTIDIURETIC HORMONE SECRETION [None]
  - DRUG ERUPTION [None]
